FAERS Safety Report 11507895 (Version 1)
Quarter: 2015Q3

REPORT INFORMATION
  Report Type: Spontaneous
  Country: US (occurrence: US)
  Receive Date: 20150903
  Receipt Date: 20150903
  Transmission Date: 20151125
  Serious: No
  Sender: FDA-Public Use
  Company Number: US-ELI_LILLY_AND_COMPANY-US200910002459

PATIENT
  Age: 67 Year
  Sex: Female

DRUGS (9)
  1. LANTUS [Concomitant]
     Active Substance: INSULIN GLARGINE
  2. HUMALOG [Suspect]
     Active Substance: INSULIN LISPRO
     Dosage: UNK, UNK
     Dates: start: 1997
  3. SIMVASTATIN. [Concomitant]
     Active Substance: SIMVASTATIN
  4. DILTIAZEM [Concomitant]
     Active Substance: DILTIAZEM
  5. DOXAZOSIN [Concomitant]
     Active Substance: DOXAZOSIN\DOXAZOSIN MESYLATE
  6. METFORMIN [Concomitant]
     Active Substance: METFORMIN HYDROCHLORIDE
     Dosage: 2000 U, DAILY (1/D)
  7. NIASPAN [Concomitant]
     Active Substance: NIACIN
  8. LISINOPRIL. [Concomitant]
     Active Substance: LISINOPRIL
  9. PREVACID [Concomitant]
     Active Substance: LANSOPRAZOLE

REACTIONS (22)
  - Incorrect dose administered [Unknown]
  - Helicobacter gastritis [Recovering/Resolving]
  - Irritability [Unknown]
  - Hypersensitivity [Not Recovered/Not Resolved]
  - Hypertension [Not Recovered/Not Resolved]
  - Hypoaesthesia [Not Recovered/Not Resolved]
  - Insomnia [Recovering/Resolving]
  - Nervousness [Unknown]
  - Anxiety [Unknown]
  - Gastrointestinal ulcer [Unknown]
  - Blood glucose increased [Recovered/Resolved]
  - Gastrointestinal disorder [Not Recovered/Not Resolved]
  - Blood glucose increased [Unknown]
  - Bronchitis [Not Recovered/Not Resolved]
  - Palpitations [Unknown]
  - Paraesthesia [Not Recovered/Not Resolved]
  - Reflux gastritis [Not Recovered/Not Resolved]
  - Cough [Not Recovered/Not Resolved]
  - Pain [Recovering/Resolving]
  - Malaise [Recovering/Resolving]
  - Nausea [Recovering/Resolving]
  - Irritability [Unknown]

NARRATIVE: CASE EVENT DATE: 2007
